FAERS Safety Report 7504262-3 (Version None)
Quarter: 2011Q2

REPORT INFORMATION
  Report Type: 
  Country: None (occurrence: None)
  Receive Date: 20110401
  Receipt Date: 20110128
  Transmission Date: 20111010
  Serious: No
  Sender: FDA-Public Use
  Company Number: US-004635

PATIENT
  Age: 86 Year
  Sex: Male
  Weight: 91.6 kg

DRUGS (1)
  1. FIRMAGON [Suspect]
     Indication: PROSTATE CANCER
     Dosage: 120 MG, 120MG INJECTION OF THE 240 MG LOADING DOSE SUBCUTANEOUS
     Route: 058
     Dates: start: 20110127, end: 20110127

REACTIONS (1)
  - INJECTION SITE HYPERSENSITIVITY [None]
